FAERS Safety Report 24440934 (Version 2)
Quarter: 2024Q4

REPORT INFORMATION
  Report Type: Report from Study
  Country: US (occurrence: US)
  Receive Date: 20241016
  Receipt Date: 20241017
  Transmission Date: 20250114
  Serious: No
  Sender: ROCHE
  Company Number: US-ROCHE-3454847

PATIENT
  Age: 38 Year
  Sex: Female

DRUGS (1)
  1. HEMLIBRA [Suspect]
     Active Substance: EMICIZUMAB-KXWH
     Indication: Factor VIII deficiency
     Dosage: ONCE EVERY TWO WEEKS ;ONGOING: YES
     Route: 065

REACTIONS (2)
  - Product dose omission in error [Unknown]
  - Drug ineffective [Unknown]
